FAERS Safety Report 6355384-4 (Version None)
Quarter: 2009Q3

REPORT INFORMATION
  Report Type: 
  Country: None (occurrence: None)
  Receive Date: 20090914
  Receipt Date: 20090909
  Transmission Date: 20100115
  Serious: Yes (Hospitalization)
  Sender: FDA-Public Use
  Company Number: JP-GENENTECH-290004

PATIENT
  Age: 58 Year
  Sex: Male

DRUGS (5)
  1. MABTHERA [Suspect]
     Indication: B-CELL LYMPHOMA
  2. DOXORUBICIN HCL [Concomitant]
     Indication: B-CELL LYMPHOMA
  3. CYCLOPHOSPHAMIDE [Concomitant]
     Indication: B-CELL LYMPHOMA
  4. VINCRISTINE SULFATE [Concomitant]
     Indication: B-CELL LYMPHOMA
  5. PREDNISOLONE [Concomitant]
     Indication: B-CELL LYMPHOMA

REACTIONS (1)
  - SICK SINUS SYNDROME [None]
